FAERS Safety Report 9204119 (Version 2)
Quarter: 2014Q1

REPORT INFORMATION
  Report Type: Spontaneous
  Country: US (occurrence: US)
  Receive Date: 20130402
  Receipt Date: 20140324
  Transmission Date: 20141002
  Serious: No
  Sender: FDA-Public Use
  Company Number: US-PFIZER INC-2013101864

PATIENT
  Age: 46 Year
  Sex: Female

DRUGS (7)
  1. SEPTRA [Suspect]
     Dosage: UNK
  2. ETODOLAC [Suspect]
     Dosage: UNK
  3. AMOXICILLIN [Suspect]
     Dosage: UNK
  4. BACLOFEN [Suspect]
     Dosage: UNK
  5. CITALOPRAM [Suspect]
     Dosage: UNK
  6. ACETYLSALICYLIC ACID [Suspect]
     Dosage: UNK
  7. CIPRO [Suspect]
     Dosage: UNK

REACTIONS (1)
  - Drug hypersensitivity [Unknown]
